FAERS Safety Report 20218926 (Version 2)
Quarter: 2022Q2

REPORT INFORMATION
  Report Type: Spontaneous
  Country: US (occurrence: US)
  Receive Date: 20211222
  Receipt Date: 20220427
  Transmission Date: 20220721
  Serious: No
  Sender: FDA-Public Use
  Company Number: US-BioHaven Pharmaceuticals-2021BHV002877

PATIENT
  Age: 19 Year
  Sex: Female

DRUGS (1)
  1. NURTEC ODT [Suspect]
     Active Substance: RIMEGEPANT SULFATE
     Indication: Migraine prophylaxis
     Dosage: RE-STARTED NURTEC ABOUT 1 MONTH AGO
     Route: 065

REACTIONS (4)
  - Drug ineffective [Recovered/Resolved]
  - Nasopharyngitis [Recovered/Resolved]
  - Coxsackie viral infection [Recovered/Resolved]
  - Headache [Recovered/Resolved with Sequelae]
